FAERS Safety Report 6272262-X (Version None)
Quarter: 2009Q3

REPORT INFORMATION
  Report Type: 
  Country: None (occurrence: None)
  Receive Date: 20090717
  Receipt Date: 20090706
  Transmission Date: 20100115
  Serious: Yes (Life-Threatening, Hospitalization, Other)
  Sender: FDA-Public Use
  Company Number: GR-PFIZER INC-2009236004

PATIENT
  Age: 39 Year

DRUGS (4)
  1. AMPICILLIN SODIUM/SULBACTAM SODIUM [Suspect]
     Indication: MENINGITIS STAPHYLOCOCCAL
     Dosage: UNK
  2. CLINDAMYCIN HCL [Suspect]
     Indication: MENINGITIS STAPHYLOCOCCAL
  3. CEFTRIAXONE [Suspect]
     Indication: MENINGITIS STAPHYLOCOCCAL
  4. CIPROFLOXACIN HYDROCHLORIDE [Suspect]

REACTIONS (7)
  - ABSCESS [None]
  - AORTIC VALVE INCOMPETENCE [None]
  - CARDIAC FAILURE [None]
  - ENDOCARDITIS STAPHYLOCOCCAL [None]
  - MITRAL VALVE INCOMPETENCE [None]
  - PLEURAL EFFUSION [None]
  - TRICUSPID VALVE INCOMPETENCE [None]
